FAERS Safety Report 9530958 (Version 1)
Quarter: 2013Q2

REPORT INFORMATION
  Report Type: Spontaneous
  Country: US (occurrence: None)
  Receive Date: 20130418
  Receipt Date: 20130418
  Transmission Date: 20140414
  Serious: Yes (Other)
  Sender: FDA-Public Use
  Company Number: 1301XAA004122

PATIENT
  Age: 1 Year
  Sex: Female

DRUGS (2)
  1. SINGULAIR [Suspect]
     Indication: BRONCHITIS
     Route: 048
  2. FLIXOTIDE [Suspect]
     Dosage: 1 PUFF PER DAY, RESPIRATORY

REACTIONS (1)
  - Erythema multiforme [None]
